FAERS Safety Report 7387085-8 (Version None)
Quarter: 2011Q1

REPORT INFORMATION
  Report Type: 
  Country: None (occurrence: None)
  Receive Date: 20110331
  Receipt Date: 20110323
  Transmission Date: 20110831
  Serious: Yes (Hospitalization)
  Sender: FDA-Public Use
  Company Number: US-AMGEN-USASP2011015879

PATIENT
  Age: 50 Year
  Sex: Female

DRUGS (3)
  1. ENBREL [Suspect]
     Indication: PSORIATIC ARTHROPATHY
     Dosage: 50 MG, QWK
     Dates: start: 20061101
  2. ENBREL [Suspect]
     Indication: RHEUMATOID ARTHRITIS
  3. ENBREL [Suspect]
     Indication: PSORIASIS

REACTIONS (8)
  - NASOPHARYNGITIS [None]
  - ALOPECIA [None]
  - PSORIATIC ARTHROPATHY [None]
  - ABDOMINAL HERNIA [None]
  - INCISIONAL HERNIA [None]
  - SKIN EXFOLIATION [None]
  - SMALL INTESTINAL OBSTRUCTION [None]
  - RESPIRATORY TRACT CONGESTION [None]
